FAERS Safety Report 14639545 (Version 1)
Quarter: 2018Q1

REPORT INFORMATION
  Report Type: Spontaneous
  Country: DE (occurrence: DE)
  Receive Date: 20180315
  Receipt Date: 20180315
  Transmission Date: 20180509
  Serious: Yes (Other)
  Sender: FDA-Public Use
  Company Number: DE-MACLEODS PHARMACEUTICALS US LTD-MAC2018011202

PATIENT

DRUGS (2)
  1. APIXABEN [Suspect]
     Active Substance: APIXABAN
     Indication: BACK PAIN
     Dosage: 2.5 MG, BID
     Route: 065
  2. CLOPIDOGREL [Suspect]
     Active Substance: CLOPIDOGREL BISULFATE
     Indication: BACK PAIN
     Dosage: 75 MG, QD
     Route: 065

REACTIONS (3)
  - Off label use [Recovered/Resolved]
  - Metallosis of globe [Recovered/Resolved]
  - Spinal subarachnoid haemorrhage [Recovered/Resolved]
